FAERS Safety Report 6248529-8 (Version None)
Quarter: 2009Q2

REPORT INFORMATION
  Report Type: 
  Country: None (occurrence: None)
  Receive Date: 20090629
  Receipt Date: 20090623
  Transmission Date: 20091009
  Serious: Yes (Hospitalization)
  Sender: FDA-Public Use
  Company Number: FR-BRISTOL-MYERS SQUIBB COMPANY-14678650

PATIENT
  Age: 72 Year
  Sex: Female

DRUGS (4)
  1. ABILIFY [Suspect]
     Indication: PERSECUTORY DELUSION
     Dosage: TAKENG MORE THAN A YEAR
     Route: 048
  2. TRANXENE [Suspect]
  3. TERCIAN [Concomitant]
     Indication: SLEEP DISORDER
  4. TERCIAN [Concomitant]
     Indication: DRUG ABUSE

REACTIONS (2)
  - CONFUSIONAL STATE [None]
  - DEMENTIA [None]
